FAERS Safety Report 6769869-X (Version None)
Quarter: 2010Q2

REPORT INFORMATION
  Report Type: 
  Country: None (occurrence: None)
  Receive Date: 20100615
  Receipt Date: 20100604
  Transmission Date: 20101027
  Serious: Yes (Death, Hospitalization, Other)
  Sender: FDA-Public Use
  Company Number: US-GENZYME-THYM-1001499

PATIENT
  Age: 38 Year
  Sex: Female

DRUGS (25)
  1. THYMOGLOBULIN [Suspect]
     Indication: BONE MARROW CONDITIONING REGIMEN
     Dosage: 46 MG, ONCE
     Route: 042
     Dates: start: 20100426, end: 20100426
  2. THYMOGLOBULIN [Suspect]
     Dosage: 138 MG, ONCE
     Route: 042
     Dates: start: 20100427, end: 20100427
  3. THYMOGLOBULIN [Suspect]
     Dosage: 184 MG, ONCE
     Route: 042
     Dates: start: 20100428, end: 20100428
  4. GRANULOCYTE COLONY STIMULATING FACTOR [Concomitant]
     Indication: CHRONIC MYELOID LEUKAEMIA
     Dosage: 780 MCG, QD
     Route: 058
     Dates: start: 20100420, end: 20100425
  5. GRANULOCYTE COLONY STIMULATING FACTOR [Concomitant]
     Indication: HAEMATOPOIETIC STEM CELL MOBILISATION
  6. MOZOBIL [Concomitant]
     Indication: CHRONIC MYELOID LEUKAEMIA
     Dosage: 17112 MCG, QD
     Route: 058
     Dates: start: 20100422, end: 20100425
  7. MOZOBIL [Concomitant]
     Indication: HAEMATOPOIETIC STEM CELL MOBILISATION
  8. FLUDARABINE [Concomitant]
     Indication: DRUG USE FOR UNKNOWN INDICATION
     Dosage: 80 MG, QD
     Route: 042
     Dates: start: 20100423, end: 20100426
  9. BUSULFEX [Concomitant]
     Indication: DRUG USE FOR UNKNOWN INDICATION
     Dosage: 230 MG, QD
     Route: 042
     Dates: start: 20100423, end: 20100426
  10. TACROLIMUS [Concomitant]
     Indication: DRUG USE FOR UNKNOWN INDICATION
     Dosage: 3.6 NG/ML, UNK
     Route: 065
     Dates: start: 20100504, end: 20100504
  11. COMBIVENT [Concomitant]
     Indication: DRUG USE FOR UNKNOWN INDICATION
     Dosage: 18 MCG, QID
     Route: 055
     Dates: start: 20100503, end: 20100505
  12. ACYCLOVIR [Concomitant]
     Indication: DRUG USE FOR UNKNOWN INDICATION
     Dosage: 400 MG, Q12HR
     Route: 042
     Dates: start: 20100503, end: 20100505
  13. PHYTONADIONE [Concomitant]
     Indication: DRUG USE FOR UNKNOWN INDICATION
     Dosage: 10 MG, UNK
     Route: 042
     Dates: start: 20100503
  14. CEFEPIME [Concomitant]
     Indication: DRUG USE FOR UNKNOWN INDICATION
     Dosage: 2 G, UNK
     Route: 042
     Dates: start: 20100503, end: 20100505
  15. VANCOMYCIN [Concomitant]
     Indication: DRUG USE FOR UNKNOWN INDICATION
     Dosage: 1 G, Q12HR
     Dates: start: 20100503, end: 20100505
  16. LEVETIRACETAM [Concomitant]
     Indication: DRUG USE FOR UNKNOWN INDICATION
     Dosage: 500 MG, Q12HR
     Route: 042
     Dates: start: 20100504, end: 20100505
  17. PHENYLEPHRINE [Concomitant]
     Indication: DRUG USE FOR UNKNOWN INDICATION
     Dosage: 180 OTHER, UNK
     Route: 042
     Dates: start: 20100504, end: 20100505
  18. PHENYLEPHRINE [Concomitant]
     Dosage: 200 OTHER, UNK
     Route: 042
     Dates: start: 20100504, end: 20100505
  19. PHENYLEPHRINE [Concomitant]
     Dosage: 225 OTHER, UNK
     Route: 042
     Dates: start: 20100504, end: 20100505
  20. PHENYLEPHRINE [Concomitant]
     Dosage: 250 OTHER, UNK
     Route: 042
     Dates: start: 20100504, end: 20100505
  21. ANIDULAFUNGIN [Concomitant]
     Indication: DRUG USE FOR UNKNOWN INDICATION
     Dosage: 100 MG, QD
     Dates: start: 20100504, end: 20100505
  22. PANTOPRAZOLE [Concomitant]
     Indication: DRUG USE FOR UNKNOWN INDICATION
     Dosage: 40 MG, ONCE
     Route: 042
     Dates: start: 20100505, end: 20100505
  23. DESMOPRESSIN ACETATE [Concomitant]
     Indication: DRUG USE FOR UNKNOWN INDICATION
     Dosage: 1 MCG, ONCE
     Route: 042
     Dates: start: 20100505, end: 20100505
  24. HYDROCORTISONE [Concomitant]
     Indication: PREMEDICATION
     Dosage: 25 MG, UNK
     Route: 042
     Dates: start: 20100503
  25. POTASSIUM PHOSPHATE DIBASIC [Concomitant]
     Indication: ELECTROLYTE IMBALANCE
     Dosage: UNK UNK, UNK

REACTIONS (2)
  - CEREBRAL HAEMORRHAGE [None]
  - THROMBOCYTOPENIA [None]
